FAERS Safety Report 8501893 (Version 2)
Quarter: 2012Q4

REPORT INFORMATION
  Report Type: 
  Country: US (occurrence: US)
  Receive Date: 20120410
  Receipt Date: 20121214
  Transmission Date: 20130627
  Serious: Yes (Hospitalization)
  Sender: FDA-Public Use
  Company Number: US-BAYER-2012-032914

PATIENT
  Age: 47 Year
  Sex: Female
  Weight: 56.69 kg

DRUGS (8)
  1. YASMIN [Suspect]
     Indication: PERIMENOPAUSAL SYMPTOMS
     Dosage: UNK
     Dates: start: 2003, end: 20061031
  2. YASMIN [Suspect]
     Indication: PREMENSTRUAL SYNDROME
  3. YASMIN [Suspect]
     Indication: MENORRHAGIA
  4. NEXIUM [Concomitant]
     Indication: INDIGESTION
     Dosage: 40 mg, daily
     Dates: start: 2004, end: 2009
  5. TUMS [Concomitant]
     Dosage: Occasional
  6. IBUPROFEN [Concomitant]
     Indication: PLANTAR FASCIITIS
     Dosage: 600 to 800 mg tid
  7. PERCOCET [Concomitant]
  8. MOTRIN [Concomitant]

REACTIONS (4)
  - Pulmonary embolism [Recovered/Resolved]
  - Injury [Recovered/Resolved]
  - Pain [Recovered/Resolved]
  - Off label use [None]
